FAERS Safety Report 20142919 (Version 1)
Quarter: 2021Q4

REPORT INFORMATION
  Report Type: Spontaneous
  Country: US (occurrence: None)
  Receive Date: 20211202
  Receipt Date: 20211202
  Transmission Date: 20220303
  Serious: No
  Sender: FDA-Public Use
  Company Number: US-ROCHE-2795815

PATIENT
  Sex: Female
  Weight: 56.750 kg

DRUGS (14)
  1. TAMIFLU [Suspect]
     Active Substance: OSELTAMIVIR PHOSPHATE
     Indication: Antiviral prophylaxis
     Dosage: 2 PILLS PER DAY FOR 10 DAYS
     Route: 048
     Dates: start: 20171114
  2. COUMADIN [Concomitant]
     Active Substance: WARFARIN SODIUM
     Indication: Deep vein thrombosis
     Dosage: BLOOD CLOTTING MUTATION, PE, VARIED, WOULD SAY ABOUT 7.5MG PER DAY
  3. COUMADIN [Concomitant]
     Active Substance: WARFARIN SODIUM
     Indication: Pulmonary embolism
  4. INFLUENZA VIRUS VACCINE [Concomitant]
     Active Substance: INFLUENZA VIRUS VACCINE
     Indication: Antiviral prophylaxis
  5. METFORMIN [Concomitant]
     Active Substance: METFORMIN HYDROCHLORIDE
     Indication: Diabetes mellitus
  6. CRESTOR [Concomitant]
     Active Substance: ROSUVASTATIN CALCIUM
     Indication: Blood cholesterol increased
  7. ZETIA [Concomitant]
     Active Substance: EZETIMIBE
     Indication: Blood cholesterol increased
  8. METOPROLOL [Concomitant]
     Active Substance: METOPROLOL
     Indication: Angina pectoris
     Dosage: IN THE MORNING
  9. METOPROLOL [Concomitant]
     Active Substance: METOPROLOL
     Dosage: IN THE EVENING
  10. PROLIA [Concomitant]
     Active Substance: DENOSUMAB
     Indication: Osteoporosis
     Dosage: NEXT DOSE DUE IN MAY
  11. LANSOPRAZOLE [Concomitant]
     Active Substance: LANSOPRAZOLE
     Indication: Dyspepsia
     Dosage: AS NEEDED
  12. LASIX [Concomitant]
     Active Substance: FUROSEMIDE
     Indication: Peripheral swelling
     Dosage: ALTERNATING 20 OR 40 MG
  13. POTASSIUM CHLORIDE [Concomitant]
     Active Substance: POTASSIUM CHLORIDE
     Dosage: TAKES WITH LASIX
  14. ELIQUIS [Concomitant]
     Active Substance: APIXABAN
     Indication: Deep vein thrombosis
     Dosage: BLOOD CLOTTING MUTATION?PE

REACTIONS (8)
  - Ageusia [Not Recovered/Not Resolved]
  - Anosmia [Not Recovered/Not Resolved]
  - Fluid retention [Not Recovered/Not Resolved]
  - Pain in extremity [Recovering/Resolving]
  - Dysphagia [Unknown]
  - Arthritis [Unknown]
  - Weight fluctuation [Unknown]
  - Body height decreased [Unknown]
